FAERS Safety Report 20836299 (Version 2)
Quarter: 2022Q2

REPORT INFORMATION
  Report Type: Spontaneous
  Country: PS (occurrence: PS)
  Receive Date: 20220516
  Receipt Date: 20220525
  Transmission Date: 20220721
  Serious: Yes (Death, Life-Threatening, Hospitalization, Other)
  Sender: FDA-Public Use
  Company Number: None

PATIENT
  Age: 34 Year
  Sex: Female

DRUGS (5)
  1. VANCOMYCIN [Suspect]
     Active Substance: VANCOMYCIN
     Indication: Evidence based treatment
     Dosage: 1 GRAM, BID (EMPIRICAL)
     Route: 065
  2. DEXAMETHASONE [Suspect]
     Active Substance: DEXAMETHASONE
     Indication: Cranial nerve paralysis
     Dosage: 4 MILLIGRAM, TID
     Route: 065
  3. CEFTRIAXONE [Suspect]
     Active Substance: CEFTRIAXONE
     Indication: Cranial nerve paralysis
     Dosage: 2 GRAM ONCE DAILY
     Route: 065
  4. METHYLPREDNISOLONE [Suspect]
     Active Substance: METHYLPREDNISOLONE
     Indication: Evidence based treatment
     Dosage: 1 GRAM DAILY (EMPIRICAL)
     Route: 065
  5. PIPERACILLIN SODIUM\TAZOBACTAM SODIUM [Suspect]
     Active Substance: PIPERACILLIN SODIUM\TAZOBACTAM SODIUM
     Indication: Evidence based treatment
     Dosage: 4.5 GRAM, QID (EMPIRICAL)
     Route: 065

REACTIONS (6)
  - Cardiac arrest [Fatal]
  - Diabetic ketoacidosis [Fatal]
  - Intentional product misuse [Fatal]
  - Rhinocerebral mucormycosis [Fatal]
  - Product prescribing issue [Fatal]
  - Cellulitis orbital [Unknown]
